FAERS Safety Report 9287009 (Version 3)
Quarter: 2013Q2

REPORT INFORMATION
  Report Type: Report from Study
  Country: US (occurrence: US)
  Receive Date: 20130513
  Receipt Date: 20130618
  Transmission Date: 20140414
  Serious: Yes (Life-Threatening, Hospitalization)
  Sender: FDA-Public Use
  Company Number: US-TEVA-404322USA

PATIENT
  Age: 1 Year
  Sex: Female
  Weight: 7.8 kg

DRUGS (14)
  1. LESTAURTINIB [Suspect]
     Indication: ACUTE LYMPHOCYTIC LEUKAEMIA
     Dosage: 988 MILLIGRAM DAILY; TOTAL DOSE ADMINISTERED THIS COURSE
     Dates: end: 20130504
  2. CYCLOPHOSPHAMIDE [Suspect]
     Indication: ACUTE LYMPHOCYTIC LEUKAEMIA
     Dates: end: 20130329
  3. CYTARABINE [Suspect]
     Indication: ACUTE LYMPHOCYTIC LEUKAEMIA
     Dosage: 413 MILLIGRAM DAILY; TOTAL DOSE ADMINISTERED THIS COURSE
     Dates: end: 20130502
  4. DAUNORUBICIN [Suspect]
     Indication: ACUTE LYMPHOCYTIC LEUKAEMIA
     Dosage: TOTAL DOSE ADMINISTERED THIS COURSE
     Dates: end: 20130419
  5. DEXAMETHASONE [Suspect]
     Indication: ACUTE LYMPHOCYTIC LEUKAEMIA
     Dosage: 59.69 MILLIGRAM DAILY; TOTAL DOSE ADMINISTERED THIS COURSE
     Dates: end: 20130504
  6. ETOPOSIDE [Suspect]
     Indication: ACUTE LYMPHOCYTIC LEUKAEMIA
     Dosage: 225 MILLIGRAM DAILY; TOTAL DOSE ADMINISTERED THIS COURSE
     Dates: end: 20130329
  7. HYDROCORTISONE [Suspect]
     Dosage: 55 MILLIGRAM DAILY; TOTAL DOSE ADMINISTERED THIS COURSE
     Dates: end: 20130502
  8. L-ASPARAGINASE [Suspect]
     Indication: ACUTE LYMPHOCYTIC LEUKAEMIA
     Dosage: 19200 IU (INTERNATIONAL UNIT) DAILY; TOTAL DOSE ADMINISTERED THIS COURSE
     Dates: end: 20130212
  9. METHOTREXATE [Suspect]
     Indication: ACUTE LYMPHOCYTIC LEUKAEMIA
     Dosage: 3283.75 MILLIGRAM DAILY; TOTAL DOSE ADMINISTERED THIS COURSE
     Route: 037
     Dates: end: 20130502
  10. PEGASPARGASE [Suspect]
     Indication: ACUTE LYMPHOCYTIC LEUKAEMIA
     Dosage: 1005 IU (INTERNATIONAL UNIT) DAILY; TOTAL DOSE ADMINISTERED THIS COURSE
     Dates: end: 20130422
  11. PREDNISONE [Suspect]
     Indication: ACUTE LYMPHOCYTIC LEUKAEMIA
     Dosage: 100.8 MILLIGRAM DAILY; TOTAL DOSE ADMINISTERED THIS COURSE
     Dates: end: 20130118
  12. VINCRISTINE [Suspect]
     Indication: ACUTE LYMPHOCYTIC LEUKAEMIA
     Dosage: 2.99 MILLIGRAM DAILY; TOTAL DOSE ADMINISTERED THIS COURSE
     Dates: end: 20130502
  13. FOLINIC ACID [Suspect]
     Indication: ACUTE LYMPHOCYTIC LEUKAEMIA
     Dosage: 61.2 MILLIGRAM DAILY; TOTAL DOSE ADMINISTERED THIS COURSE
     Dates: end: 20130314
  14. TPN [Suspect]
     Dates: start: 20130510

REACTIONS (10)
  - Lower gastrointestinal haemorrhage [Recovered/Resolved]
  - Hypoxia [Recovered/Resolved]
  - Hypotension [Recovered/Resolved]
  - Diarrhoea [Recovered/Resolved]
  - Acidosis [Recovered/Resolved]
  - Alanine aminotransferase increased [Recovered/Resolved]
  - Aspartate aminotransferase increased [Recovered/Resolved]
  - Sepsis [Recovered/Resolved]
  - Sinus tachycardia [Recovered/Resolved]
  - Blood bilirubin increased [Recovered/Resolved]
